FAERS Safety Report 13880452 (Version 2)
Quarter: 2017Q3

REPORT INFORMATION
  Report Type: Report from Study
  Country: None (occurrence: US)
  Receive Date: 20170818
  Receipt Date: 20170929
  Transmission Date: 20171127
  Serious: Yes (Hospitalization, Other)
  Sender: FDA-Public Use
  Company Number: US-ABBVIE-17K-163-2069962-00

PATIENT
  Age: 81 Year
  Sex: Female
  Weight: 102.15 kg

DRUGS (2)
  1. HUMIRA [Suspect]
     Active Substance: ADALIMUMAB
     Dosage: STARTER DOSING (MAINTENANCE DOSE)
     Route: 058
     Dates: start: 201707, end: 201707
  2. HUMIRA [Suspect]
     Active Substance: ADALIMUMAB
     Indication: PSORIASIS
     Dosage: STARTER DOSING (LOADING DOSE)
     Route: 058
     Dates: start: 201706, end: 201706

REACTIONS (11)
  - Generalised erythema [Recovered/Resolved]
  - Diuretic therapy [Unknown]
  - Drug eruption [Recovered/Resolved with Sequelae]
  - Arthralgia [Recovered/Resolved]
  - Drug hypersensitivity [Recovering/Resolving]
  - Pain [Not Recovered/Not Resolved]
  - Gout [Not Recovered/Not Resolved]
  - Diarrhoea [Recovered/Resolved]
  - Dermatitis [Recovered/Resolved]
  - Gait disturbance [Recovering/Resolving]
  - Dyspnoea [Recovering/Resolving]

NARRATIVE: CASE EVENT DATE: 2017
